FAERS Safety Report 7395987-1 (Version None)
Quarter: 2011Q2

REPORT INFORMATION
  Report Type: 
  Country: None (occurrence: None)
  Receive Date: 20110406
  Receipt Date: 20110329
  Transmission Date: 20111010
  Serious: No
  Sender: FDA-Public Use
  Company Number: US-BIOGENIDEC-2011BI012268

PATIENT
  Sex: Male

DRUGS (7)
  1. ALPRAZOLAM [Concomitant]
     Indication: DEPRESSION
  2. AMBIEN [Concomitant]
     Indication: INSOMNIA
  3. HYDROCODONE [Concomitant]
     Indication: PAIN
  4. AVONEX [Suspect]
     Indication: MULTIPLE SCLEROSIS
     Route: 030
     Dates: start: 20090201
  5. PAIN MEDICATION (NOS) [Concomitant]
     Indication: PRODUCT USED FOR UNKNOWN INDICATION
  6. ANTIDEPRESSANT (NOS) [Concomitant]
     Indication: DEPRESSED MOOD
  7. TRAZODONE HCL [Concomitant]
     Indication: DEPRESSION

REACTIONS (10)
  - PYREXIA [None]
  - HEADACHE [None]
  - PARALYSIS [None]
  - FRUSTRATION [None]
  - CONSTIPATION [None]
  - CHEST PAIN [None]
  - GAIT DISTURBANCE [None]
  - HYPOAESTHESIA [None]
  - MUSCULOSKELETAL STIFFNESS [None]
  - WEIGHT DECREASED [None]
